FAERS Safety Report 17196828 (Version 2)
Quarter: 2021Q1

REPORT INFORMATION
  Report Type: Spontaneous
  Country: US (occurrence: US)
  Receive Date: 20191224
  Receipt Date: 20210217
  Transmission Date: 20210419
  Serious: Yes (Hospitalization, Other)
  Sender: FDA-Public Use
  Company Number: US-ASTRAZENECA-2019SF85032

PATIENT
  Age: 21070 Day
  Sex: Female
  Weight: 86.6 kg

DRUGS (44)
  1. CYMBOLTA [Concomitant]
     Indication: NEUROPATHY PERIPHERAL
     Dates: start: 202008
  2. SYMBICORT [Concomitant]
     Active Substance: BUDESONIDE\FORMOTEROL FUMARATE DIHYDRATE
  3. INDERAL [Concomitant]
     Active Substance: PROPRANOLOL HYDROCHLORIDE
  4. ZOFRAN [Concomitant]
     Active Substance: ONDANSETRON HYDROCHLORIDE
  5. LEVOTHYROXINE. [Concomitant]
     Active Substance: LEVOTHYROXINE
  6. NICOTINE. [Concomitant]
     Active Substance: NICOTINE
  7. PRILOSEC OTC [Suspect]
     Active Substance: OMEPRAZOLE MAGNESIUM
     Indication: GASTRIC ULCER
     Route: 048
     Dates: start: 201501, end: 201812
  8. MOTRIN [Concomitant]
     Active Substance: IBUPROFEN
     Indication: PAIN
     Dosage: 800 MG
     Dates: start: 2015
  9. CYMBOLTA [Concomitant]
     Indication: ANXIETY
     Dates: start: 202008
  10. INSULIN GLARGINE [Concomitant]
     Active Substance: INSULIN GLARGINE
  11. BACLOFEN. [Concomitant]
     Active Substance: BACLOFEN
  12. SODIUM CHLORIDE. [Concomitant]
     Active Substance: SODIUM CHLORIDE
  13. TRIAMCINOLONE [Concomitant]
     Active Substance: TRIAMCINOLONE
  14. CODEINE [Concomitant]
     Active Substance: CODEINE
  15. INSULIN [Concomitant]
     Active Substance: INSULIN NOS
  16. FOLIC ACID. [Concomitant]
     Active Substance: FOLIC ACID
  17. BACTRIM [Concomitant]
     Active Substance: SULFAMETHOXAZOLE\TRIMETHOPRIM
  18. VICTOZA [Concomitant]
     Active Substance: LIRAGLUTIDE
  19. ZETIA [Concomitant]
     Active Substance: EZETIMIBE
  20. LACTULOSE. [Concomitant]
     Active Substance: LACTULOSE
  21. TRAMADOL. [Concomitant]
     Active Substance: TRAMADOL
  22. CALCIUM CARBONATE. [Concomitant]
     Active Substance: CALCIUM CARBONATE
  23. CRESTOR [Concomitant]
     Active Substance: ROSUVASTATIN CALCIUM
  24. NAPROXEN. [Concomitant]
     Active Substance: NAPROXEN
  25. PRILOSEC [Suspect]
     Active Substance: OMEPRAZOLE MAGNESIUM
     Indication: GASTRIC ULCER
     Route: 048
     Dates: start: 201501, end: 201812
  26. LORAZEPAM. [Concomitant]
     Active Substance: LORAZEPAM
     Indication: SLEEP DISORDER
     Dates: start: 2010
  27. MOXATAG [Concomitant]
     Active Substance: AMOXICILLIN
     Indication: URINARY TRACT INFECTION
     Dates: start: 202008
  28. FAMOTIDINE. [Concomitant]
     Active Substance: FAMOTIDINE
  29. GABAPENTIN. [Concomitant]
     Active Substance: GABAPENTIN
  30. AZITHROMYCIN ANHYDROUS. [Concomitant]
     Active Substance: AZITHROMYCIN ANHYDROUS
  31. HUMALOG [Concomitant]
     Active Substance: INSULIN LISPRO
  32. PRILOSEC [Suspect]
     Active Substance: OMEPRAZOLE MAGNESIUM
     Indication: GASTRIC ULCER
     Dosage: GENERIC
     Route: 065
     Dates: start: 20200602, end: 20200630
  33. PRILOSEC OTC [Suspect]
     Active Substance: OMEPRAZOLE MAGNESIUM
     Indication: GASTRIC ULCER
     Route: 048
     Dates: start: 2015
  34. LORAZEPAM. [Concomitant]
     Active Substance: LORAZEPAM
     Indication: ANXIETY
     Dates: start: 2010
  35. CIMETIDINE [Concomitant]
     Active Substance: CIMETIDINE
  36. CARVEDILOL. [Concomitant]
     Active Substance: CARVEDILOL
  37. PREDNISOLONE. [Concomitant]
     Active Substance: PREDNISOLONE
  38. BETADINE [Concomitant]
     Active Substance: POVIDONE-IODINE
  39. CLARITHROMYCIN. [Concomitant]
     Active Substance: CLARITHROMYCIN
  40. DOCUSATE SODIUM. [Concomitant]
     Active Substance: DOCUSATE SODIUM
  41. BUTRANS [Concomitant]
     Active Substance: BUPRENORPHINE
  42. PRILOSEC [Suspect]
     Active Substance: OMEPRAZOLE MAGNESIUM
     Indication: GASTRIC ULCER
     Dosage: GENERIC
     Route: 065
     Dates: start: 2015
  43. NEXIUM 24HR [Suspect]
     Active Substance: ESOMEPRAZOLE MAGNESIUM
     Indication: GASTRIC ULCER
     Dosage: RECOMENDED DOSAGE
     Route: 048
  44. ALIVE PM [Concomitant]
     Indication: BACK PAIN
     Dosage: ONLY TAKEN WHEN EXTREM PAIN

REACTIONS (4)
  - Renal failure [Unknown]
  - Gastric ulcer [Not Recovered/Not Resolved]
  - Chronic kidney disease [Not Recovered/Not Resolved]
  - Acute kidney injury [Unknown]

NARRATIVE: CASE EVENT DATE: 20161229
